FAERS Safety Report 13483329 (Version 1)
Quarter: 2017Q2

REPORT INFORMATION
  Report Type: Spontaneous
  Country: US (occurrence: US)
  Receive Date: 20170425
  Receipt Date: 20170425
  Transmission Date: 20170830
  Serious: No
  Sender: FDA-Public Use
  Company Number: None

PATIENT
  Age: 86 Year
  Sex: Female

DRUGS (1)
  1. IBRANCE [Suspect]
     Active Substance: PALBOCICLIB
     Route: 048
     Dates: start: 20150425, end: 20170425

REACTIONS (3)
  - Chills [None]
  - Pruritus [None]
  - Viral upper respiratory tract infection [None]

NARRATIVE: CASE EVENT DATE: 20170425
